FAERS Safety Report 21556000 (Version 1)
Quarter: 2022Q4

REPORT INFORMATION
  Report Type: Spontaneous
  Country: US (occurrence: None)
  Receive Date: 20221104
  Receipt Date: 20221104
  Transmission Date: 20230113
  Serious: No
  Sender: FDA-Public Use
  Company Number: 2022A340925

PATIENT
  Age: 30433 Day
  Sex: Female
  Weight: 72.6 kg

DRUGS (1)
  1. FARXIGA [Suspect]
     Active Substance: DAPAGLIFLOZIN PROPANEDIOL
     Indication: Type 2 diabetes mellitus
     Route: 048
     Dates: start: 20220914

REACTIONS (6)
  - Insomnia [Unknown]
  - Skin irritation [Unknown]
  - Burning sensation [Unknown]
  - Discomfort [Unknown]
  - Pain [Unknown]
  - Urinary tract infection [Not Recovered/Not Resolved]

NARRATIVE: CASE EVENT DATE: 20221003
